FAERS Safety Report 13235737 (Version 1)
Quarter: 2017Q1

REPORT INFORMATION
  Report Type: Report from Study
  Country: None (occurrence: US)
  Receive Date: 20170215
  Receipt Date: 20170215
  Transmission Date: 20170428
  Serious: No
  Sender: FDA-Public Use
  Company Number: US-AMAG PHARMACEUTICALS, INC.-AMAG201601687

PATIENT

DRUGS (2)
  1. ANTIFUNGALS FOR SYSTEMIC USE [Concomitant]
     Indication: FUNGAL INFECTION
     Route: 048
  2. MAKENA [Suspect]
     Active Substance: HYDROXYPROGESTERONE CAPROATE
     Indication: PRODUCT USED FOR UNKNOWN INDICATION
     Dosage: UNK
     Route: 065
     Dates: start: 20160816

REACTIONS (2)
  - Fungal infection [Unknown]
  - Bacterial vaginosis [Unknown]
